FAERS Safety Report 15608098 (Version 1)
Quarter: 2018Q4

REPORT INFORMATION
  Report Type: Spontaneous
  Country: US (occurrence: US)
  Receive Date: 20181107
  Receipt Date: 20181107
  Transmission Date: 20190205
  Serious: No
  Sender: FDA-Public Use
  Company Number: None

PATIENT
  Age: 36 Year
  Sex: Female

DRUGS (1)
  1. BOTOX [Suspect]
     Active Substance: ONABOTULINUMTOXINA
     Route: 030
     Dates: start: 201808

REACTIONS (3)
  - Pruritus generalised [None]
  - Abnormal sensation in eye [None]
  - Therapeutic response shortened [None]

NARRATIVE: CASE EVENT DATE: 20181106
